FAERS Safety Report 5880133-3 (Version None)
Quarter: 2008Q3

REPORT INFORMATION
  Report Type: 
  Country: None (occurrence: None)
  Receive Date: 20080910
  Receipt Date: 20080910
  Transmission Date: 20090109
  Serious: Yes (Hospitalization)
  Sender: FDA-Public Use
  Company Number: None

PATIENT
  Age: 54 Year
  Sex: Female

DRUGS (7)
  1. ENOXAPARIN SODIUM [Suspect]
     Indication: THROMBOSIS PROPHYLAXIS
     Dosage: 80  Q12H SQ
     Route: 058
     Dates: start: 20080411, end: 20080414
  2. PLAVIX [Concomitant]
  3. LIDODERM [Concomitant]
  4. METOPROLOL TARTRATE [Concomitant]
  5. M.V.I. [Concomitant]
  6. TYLENOL (CAPLET) [Concomitant]
  7. ALBUTEROL [Concomitant]

REACTIONS (6)
  - ASTHENIA [None]
  - DUODENAL ULCER [None]
  - GASTRITIS [None]
  - HAEMATOCRIT DECREASED [None]
  - HAEMOGLOBIN DECREASED [None]
  - OCCULT BLOOD POSITIVE [None]
